FAERS Safety Report 6001229-1 (Version None)
Quarter: 2008Q4

REPORT INFORMATION
  Report Type: 
  Country: None (occurrence: None)
  Receive Date: 20081215
  Receipt Date: 20071102
  Transmission Date: 20090506
  Serious: No
  Sender: FDA-Public Use
  Company Number: US-AMGEN-KDL250819

PATIENT
  Sex: Female

DRUGS (1)
  1. ENBREL [Suspect]
     Indication: RHEUMATOID ARTHRITIS
     Route: 058
     Dates: start: 20071025

REACTIONS (8)
  - CHILLS [None]
  - DIARRHOEA [None]
  - DIZZINESS [None]
  - EPIGASTRIC DISCOMFORT [None]
  - INFLUENZA [None]
  - PAIN [None]
  - THIRST [None]
  - VOMITING [None]
